FAERS Safety Report 9651517 (Version 1)
Quarter: 2013Q4

REPORT INFORMATION
  Report Type: Spontaneous
  Country: US (occurrence: US)
  Receive Date: 20131029
  Receipt Date: 20131029
  Transmission Date: 20140711
  Serious: No
  Sender: FDA-Public Use
  Company Number: US-ENDO PHARMACEUTICALS INC.-HCDA20120039

PATIENT
  Age: 50 Year
  Sex: Female
  Weight: 71.73 kg

DRUGS (6)
  1. HYDROCODONE/ACETAMINOPHEN 7.5MG/750MG [Suspect]
     Indication: PAIN
     Dosage: 15MG/1500MG
     Route: 048
     Dates: start: 20120424, end: 20120501
  2. NEURONTIN [Concomitant]
     Route: 048
  3. NEURONTIN [Concomitant]
     Route: 048
  4. NEURONTIN [Concomitant]
     Route: 048
  5. NEURONTIN [Concomitant]
     Route: 048
  6. NEURONTIN [Concomitant]
     Route: 048

REACTIONS (2)
  - Nausea [Not Recovered/Not Resolved]
  - Pruritus [Not Recovered/Not Resolved]
